FAERS Safety Report 7507041-6 (Version None)
Quarter: 2011Q2

REPORT INFORMATION
  Report Type: 
  Country: None (occurrence: None)
  Receive Date: 20110526
  Receipt Date: 20110518
  Transmission Date: 20111010
  Serious: Yes (Other)
  Sender: FDA-Public Use
  Company Number: DE-UCBSA-033091

PATIENT
  Sex: Female

DRUGS (2)
  1. VIMPAT [Suspect]
  2. KEPPRA [Suspect]

REACTIONS (1)
  - VISUAL FIELD DEFECT [None]
